FAERS Safety Report 24722754 (Version 2)
Quarter: 2025Q1

REPORT INFORMATION
  Report Type: Spontaneous
  Country: JP (occurrence: JP)
  Receive Date: 20241211
  Receipt Date: 20250122
  Transmission Date: 20250409
  Serious: Yes (Life-Threatening)
  Sender: MYLAN
  Company Number: JP-MYLANLABS-2024M1109081

PATIENT
  Age: 52 Year
  Sex: Male

DRUGS (1)
  1. EPIPEN [Suspect]
     Active Substance: EPINEPHRINE
     Indication: Anaphylactic shock
     Route: 065

REACTIONS (2)
  - Loss of consciousness [Unknown]
  - Needle issue [Unknown]
